FAERS Safety Report 13550230 (Version 1)
Quarter: 2017Q2

REPORT INFORMATION
  Report Type: Spontaneous
  Country: US (occurrence: US)
  Receive Date: 20170516
  Receipt Date: 20170516
  Transmission Date: 20170830
  Serious: No
  Sender: FDA-Public Use
  Company Number: US-BAYER-2017-092386

PATIENT
  Age: 78 Year
  Sex: Female
  Weight: 109 kg

DRUGS (2)
  1. DULCOLAX (BISACODYL) [Concomitant]
     Active Substance: BISACODYL
  2. MIRALAX [Suspect]
     Active Substance: POLYETHYLENE GLYCOL 3350
     Indication: COLONOSCOPY
     Dosage: UNK
     Route: 048
     Dates: start: 2014

REACTIONS (4)
  - Drug administration error [Unknown]
  - Product use in unapproved indication [Unknown]
  - Inappropriate prescribing [Unknown]
  - Off label use [Unknown]

NARRATIVE: CASE EVENT DATE: 20170504
